FAERS Safety Report 4887011-7 (Version None)
Quarter: 2006Q1

REPORT INFORMATION
  Report Type: 
  Country: None (occurrence: None)
  Receive Date: 20060118
  Receipt Date: 20060103
  Transmission Date: 20060701
  Serious: Yes (Other)
  Sender: FDA-Public Use
  Company Number: DSA_27601_2006

PATIENT
  Age: 59 Year
  Sex: Female
  Weight: 53.7966 kg

DRUGS (3)
  1. CARDIZEM CD [Suspect]
     Indication: HYPERTENSION
     Dosage: 120 MG ONCE PO
     Route: 048
     Dates: start: 20060101, end: 20060101
  2. HYDROCHLOROTHIAZIDE [Concomitant]
  3. STEROIDS [Concomitant]

REACTIONS (8)
  - DRUG HYPERSENSITIVITY [None]
  - FEELING ABNORMAL [None]
  - FLUSHING [None]
  - HALLUCINATION [None]
  - NAUSEA [None]
  - RASH ERYTHEMATOUS [None]
  - SUICIDAL IDEATION [None]
  - THINKING ABNORMAL [None]
